FAERS Safety Report 15022392 (Version 1)
Quarter: 2018Q2

REPORT INFORMATION
  Report Type: Spontaneous
  Country: US (occurrence: US)
  Receive Date: 20180618
  Receipt Date: 20180618
  Transmission Date: 20180711
  Serious: Yes (Hospitalization, Other)
  Sender: FDA-Public Use
  Company Number: PHEH2018US022980

PATIENT
  Age: 2 Year
  Sex: Male
  Weight: 19.9 kg

DRUGS (2)
  1. TRAMETINIB [Suspect]
     Active Substance: TRAMETINIB
     Indication: ASTROCYTOMA MALIGNANT
     Dosage: 0.025 MG/UG, QD
     Route: 048
     Dates: start: 20180404
  2. AVASTIN [Suspect]
     Active Substance: BEVACIZUMAB
     Indication: ASTROCYTOMA MALIGNANT
     Dosage: 10 MG/UG, QW
     Route: 042
     Dates: start: 20180404

REACTIONS (6)
  - Vomiting [Unknown]
  - Oxygen saturation decreased [Unknown]
  - Diarrhoea [Unknown]
  - Septic shock [Not Recovered/Not Resolved]
  - Mental status changes [Unknown]
  - Pyrexia [Unknown]

NARRATIVE: CASE EVENT DATE: 20180608
